FAERS Safety Report 21799633 (Version 2)
Quarter: 2025Q1

REPORT INFORMATION
  Report Type: Spontaneous
  Country: GB (occurrence: GB)
  Receive Date: 20221230
  Receipt Date: 20250205
  Transmission Date: 20250408
  Serious: Yes (Other)
  Sender: GALDERMA
  Company Number: GB-GALDERMA-GB2022018789

PATIENT

DRUGS (3)
  1. LYMECYCLINE [Suspect]
     Active Substance: LYMECYCLINE
     Indication: Product used for unknown indication
     Route: 065
  2. DOXYCYCLINE [Suspect]
     Active Substance: DOXYCYCLINE
     Indication: Product used for unknown indication
     Route: 065
  3. TRIMETHOPRIM [Concomitant]
     Active Substance: TRIMETHOPRIM
     Indication: Product used for unknown indication
     Route: 065

REACTIONS (1)
  - Drug-induced liver injury [Unknown]
